FAERS Safety Report 15060742 (Version 3)
Quarter: 2018Q3

REPORT INFORMATION
  Report Type: Report from Study
  Country: None (occurrence: FR)
  Receive Date: 20180625
  Receipt Date: 20180709
  Transmission Date: 20181010
  Serious: Yes (Other)
  Sender: FDA-Public Use
  Company Number: FR-ABBVIE-18S-056-2394248-00

PATIENT
  Age: 25 Year
  Sex: Female

DRUGS (20)
  1. PREZISTA [Suspect]
     Active Substance: DARUNAVIR ETHANOLATE
     Indication: PERSISTENT GENERALISED LYMPHADENOPATHY
  2. ISENTRESS [Suspect]
     Active Substance: RALTEGRAVIR POTASSIUM
     Indication: ACUTE HIV INFECTION
     Dosage: 800 MG, QD
     Route: 048
     Dates: start: 20100713, end: 20111108
  3. TRUVADA [Suspect]
     Active Substance: EMTRICITABINE\TENOFOVIR DISOPROXIL FUMARATE
     Indication: PERSISTENT GENERALISED LYMPHADENOPATHY
  4. SELZENTRY [Suspect]
     Active Substance: MARAVIROC
     Indication: PERSISTENT GENERALISED LYMPHADENOPATHY
  5. NORVIR [Suspect]
     Active Substance: RITONAVIR
     Indication: ACUTE HIV INFECTION
     Dosage: 100 MG, QD
     Route: 048
     Dates: start: 20100713, end: 20111108
  6. TRUVADA [Suspect]
     Active Substance: EMTRICITABINE\TENOFOVIR DISOPROXIL FUMARATE
     Indication: ACUTE HIV INFECTION
     Dosage: 1 DF, QD
     Route: 048
     Dates: start: 20120524
  7. SELZENTRY [Suspect]
     Active Substance: MARAVIROC
     Indication: ACUTE HIV INFECTION
     Dosage: 300 MG, QD
     Route: 048
     Dates: start: 20100713, end: 20111108
  8. EPZICOM [Suspect]
     Active Substance: ABACAVIR SULFATE\LAMIVUDINE
     Indication: PERSISTENT GENERALISED LYMPHADENOPATHY
     Dosage: 1 DF, QD
     Route: 048
     Dates: start: 20120220, end: 20120319
  9. KALETRA [Suspect]
     Active Substance: LOPINAVIR\RITONAVIR
     Indication: ACUTE HIV INFECTION
  10. CELSENTRI [Suspect]
     Active Substance: MARAVIROC
     Indication: ACUTE HIV INFECTION
     Dosage: 300 MG, QD
     Route: 048
     Dates: start: 20100713, end: 20111108
  11. CELSENTRI [Suspect]
     Active Substance: MARAVIROC
     Indication: PERSISTENT GENERALISED LYMPHADENOPATHY
  12. COMBIVIR [Suspect]
     Active Substance: LAMIVUDINE\ZIDOVUDINE
     Indication: PERSISTENT GENERALISED LYMPHADENOPATHY
  13. NORVIR [Suspect]
     Active Substance: RITONAVIR
     Indication: PERSISTENT GENERALISED LYMPHADENOPATHY
  14. KALETRA [Suspect]
     Active Substance: LOPINAVIR\RITONAVIR
     Indication: PERSISTENT GENERALISED LYMPHADENOPATHY
     Dosage: 2 DF, QD
     Route: 048
     Dates: start: 20120220, end: 20120524
  15. ALUVIA [Suspect]
     Active Substance: LOPINAVIR\RITONAVIR
     Indication: PERSISTENT GENERALISED LYMPHADENOPATHY
     Dosage: 2 DF, QD
     Route: 048
     Dates: start: 20120220, end: 20120524
  16. ISENTRESS [Suspect]
     Active Substance: RALTEGRAVIR POTASSIUM
     Indication: PERSISTENT GENERALISED LYMPHADENOPATHY
     Dosage: 800 MG, QD
     Route: 048
     Dates: start: 20120524
  17. EPZICOM [Suspect]
     Active Substance: ABACAVIR SULFATE\LAMIVUDINE
     Indication: ACUTE HIV INFECTION
  18. PREZISTA [Suspect]
     Active Substance: DARUNAVIR ETHANOLATE
     Indication: ACUTE HIV INFECTION
     Dosage: 800 MG, QD
     Route: 048
     Dates: start: 20100713, end: 20111108
  19. ALUVIA [Suspect]
     Active Substance: LOPINAVIR\RITONAVIR
     Indication: ACUTE HIV INFECTION
  20. COMBIVIR [Suspect]
     Active Substance: LAMIVUDINE\ZIDOVUDINE
     Indication: ACUTE HIV INFECTION
     Dosage: 2 DF, QD
     Route: 048
     Dates: start: 20120319, end: 20120524

REACTIONS (5)
  - Premature delivery [Unknown]
  - Maternal exposure during pregnancy [Recovered/Resolved]
  - Cholestasis of pregnancy [Recovered/Resolved]
  - Caesarean section [Unknown]
  - Toxoplasmosis [Unknown]

NARRATIVE: CASE EVENT DATE: 20120606
